FAERS Safety Report 26158014 (Version 1)
Quarter: 2025Q4

REPORT INFORMATION
  Report Type: Spontaneous
  Country: NZ (occurrence: NZ)
  Receive Date: 20251215
  Receipt Date: 20251215
  Transmission Date: 20260118
  Serious: Yes (Other)
  Sender: MYLAN
  Company Number: NZ-MYLANLABS-2025M1092616

PATIENT
  Age: 64 Year
  Sex: Female

DRUGS (1)
  1. CLOZARIL [Suspect]
     Active Substance: CLOZAPINE
     Indication: Schizophrenia
     Dosage: UNK
     Route: 061

REACTIONS (3)
  - Neoplasm malignant [Unknown]
  - Neutrophilia [Not Recovered/Not Resolved]
  - Leukocytosis [Recovering/Resolving]

NARRATIVE: CASE EVENT DATE: 20251006
